FAERS Safety Report 5277755-X (Version None)
Quarter: 2007Q1

REPORT INFORMATION
  Report Type: 
  Country: None (occurrence: None)
  Receive Date: 20070327
  Receipt Date: 20070315
  Transmission Date: 20070707
  Serious: Yes (Other)
  Sender: FDA-Public Use
  Company Number: US-PFIZER INC-2005162364

PATIENT
  Sex: Female

DRUGS (5)
  1. NEURONTIN [Suspect]
     Indication: PAIN
     Dates: start: 19990707, end: 20040101
  2. DILANTIN [Suspect]
     Indication: CONVULSION
  3. DILANTIN [Suspect]
     Indication: PAIN
  4. PHENOBARBITAL TAB [Concomitant]
     Indication: CONVULSION
  5. PHENOBARBITAL TAB [Concomitant]
     Indication: PAIN

REACTIONS (14)
  - ACCIDENTAL OVERDOSE [None]
  - ADJUSTMENT DISORDER [None]
  - ANXIETY [None]
  - COORDINATION ABNORMAL [None]
  - DEPRESSED MOOD [None]
  - DISTURBANCE IN ATTENTION [None]
  - DRUG INEFFECTIVE [None]
  - DYSARTHRIA [None]
  - MEMORY IMPAIRMENT [None]
  - SLEEP DISORDER [None]
  - SUICIDAL IDEATION [None]
  - SUICIDE ATTEMPT [None]
  - THERAPEUTIC AGENT TOXICITY [None]
  - WEIGHT DECREASED [None]
